FAERS Safety Report 7957876-0 (Version None)
Quarter: 2011Q4

REPORT INFORMATION
  Report Type: 
  Country: None (occurrence: None)
  Receive Date: 20111205
  Receipt Date: 20111121
  Transmission Date: 20120403
  Serious: Yes (Other)
  Sender: FDA-Public Use
  Company Number: US-MILLENNIUM PHARMACEUTICALS, INC.-2011-05919

PATIENT
  Sex: Male

DRUGS (10)
  1. TYLENOL (CAPLET) [Concomitant]
     Dosage: 325 MG, UNK
  2. ZOMETA [Concomitant]
     Indication: BONE PAIN
  3. CENTRUM SILVER                     /01292501/ [Concomitant]
     Dosage: 500 UG, UNK
  4. DOXORUBICIN HCL [Suspect]
     Indication: MULTIPLE MYELOMA
     Dosage: 100 MG, UNK
     Route: 042
     Dates: start: 20111103
  5. REVLIMID [Suspect]
     Indication: MULTIPLE MYELOMA
     Dosage: 10 MG, UNK
  6. MELPHALAN HYDROCHLORIDE [Suspect]
     Indication: MULTIPLE MYELOMA
     Dosage: 2 MG, UNK
  7. DEXAMETHASONE [Suspect]
     Indication: MULTIPLE MYELOMA
     Dosage: 4 MG, UNK
  8. VINCRISTINE [Concomitant]
     Indication: MULTIPLE MYELOMA
     Dosage: 2 MG, UNK
     Dates: start: 20111103
  9. VELCADE [Suspect]
     Indication: MULTIPLE MYELOMA
  10. ASPIRIN [Concomitant]
     Dosage: 81 MG, UNK

REACTIONS (3)
  - PANCYTOPENIA [None]
  - DRUG INEFFECTIVE [None]
  - DISEASE PROGRESSION [None]
